FAERS Safety Report 7867975-X (Version None)
Quarter: 2011Q4

REPORT INFORMATION
  Report Type: 
  Country: None (occurrence: None)
  Receive Date: 20111028
  Receipt Date: 20100405
  Transmission Date: 20120403
  Serious: No
  Sender: FDA-Public Use
  Company Number: US-BAYER-201019133NA

PATIENT
  Age: 73 Year
  Sex: Female

DRUGS (6)
  1. DIAVAN [Concomitant]
  2. SIMVASTATIN [Concomitant]
  3. UNKNOWN MEDICATION FOR OVERACTIVE THYROID [Concomitant]
  4. OMEPRAZOLE [Concomitant]
  5. ASPIRIN [Concomitant]
  6. AVELOX [Suspect]
     Indication: COUGH
     Dosage: 400 MG, QD
     Route: 048
     Dates: start: 20100101

REACTIONS (4)
  - POOR QUALITY SLEEP [None]
  - PAIN IN EXTREMITY [None]
  - SOMNOLENCE [None]
  - PARAESTHESIA [None]
